FAERS Safety Report 7137261-4 (Version None)
Quarter: 2010Q4

REPORT INFORMATION
  Report Type: 
  Country: None (occurrence: None)
  Receive Date: 20101206
  Receipt Date: 20101122
  Transmission Date: 20110411
  Serious: Yes (Other)
  Sender: FDA-Public Use
  Company Number: PHEH2009US02577

PATIENT
  Sex: Male

DRUGS (6)
  1. AREDIA [Suspect]
     Indication: METASTASES TO BONE
     Dosage: 90 MG, QMO
     Dates: start: 20050401, end: 20061102
  2. FLOMAX [Concomitant]
  3. DETROL [Concomitant]
  4. AMBIEN [Concomitant]
  5. LISINOPRIL [Concomitant]
     Dosage: 40 MG, UNK
  6. NIFEDIPINE [Concomitant]
     Dosage: 90 MG, UNK

REACTIONS (25)
  - ACTINOMYCOSIS [None]
  - ANHEDONIA [None]
  - ANXIETY [None]
  - BLADDER DIVERTICULUM [None]
  - BONE DISORDER [None]
  - CARDIOMEGALY [None]
  - CHRONIC OBSTRUCTIVE PULMONARY DISEASE [None]
  - DEBRIDEMENT [None]
  - DEPRESSION [None]
  - DISABILITY [None]
  - DIVERTICULUM [None]
  - FALL [None]
  - FEMORAL NECK FRACTURE [None]
  - HIP ARTHROPLASTY [None]
  - HYDRONEPHROSIS [None]
  - INJURY [None]
  - MALIGNANT NEOPLASM PROGRESSION [None]
  - OSTEOMYELITIS [None]
  - OSTEONECROSIS OF JAW [None]
  - PAIN [None]
  - PARAESTHESIA [None]
  - RIB FRACTURE [None]
  - SEQUESTRECTOMY [None]
  - SWELLING [None]
  - TOOTH EXTRACTION [None]
